FAERS Safety Report 16163028 (Version 1)
Quarter: 2019Q2

REPORT INFORMATION
  Report Type: Spontaneous
  Country: JP (occurrence: JP)
  Receive Date: 20190405
  Receipt Date: 20190405
  Transmission Date: 20190711
  Serious: Yes (Death)
  Sender: FDA-Public Use
  Company Number: JP-ASTRAZENECA-2019SE52307

PATIENT
  Age: 78 Year
  Sex: Male
  Weight: 59 kg

DRUGS (7)
  1. IRESSA [Suspect]
     Active Substance: GEFITINIB
     Indication: NON-SMALL CELL LUNG CANCER
     Route: 048
  2. OXINORM [Concomitant]
     Dosage: DOSE UNKNOWN
     Route: 048
     Dates: start: 20170926, end: 20190204
  3. OXYCODONE [Concomitant]
     Active Substance: OXYCODONE
     Dosage: DOSE UNKNOWN
     Route: 048
     Dates: start: 20170926, end: 20190204
  4. MAGMITT [Concomitant]
     Active Substance: MAGNESIUM OXIDE
     Dosage: DOSE UNKNOWN
     Route: 048
     Dates: start: 20170929, end: 20190204
  5. TRAZENTA [Suspect]
     Active Substance: LINAGLIPTIN
     Indication: DIABETES MELLITUS
     Route: 048
  6. MINOCYCLINE HYDROCHLORIDE. [Suspect]
     Active Substance: MINOCYCLINE HYDROCHLORIDE
     Indication: DERMATITIS ACNEIFORM
     Route: 048
  7. AMLODIPINE [Concomitant]
     Active Substance: AMLODIPINE BESYLATE
     Dosage: DOSE UNKNOWN
     Route: 048
     Dates: end: 20190204

REACTIONS (1)
  - Lung disorder [Fatal]

NARRATIVE: CASE EVENT DATE: 20190123
